FAERS Safety Report 8301333-9 (Version None)
Quarter: 2012Q2

REPORT INFORMATION
  Report Type: 
  Country: None (occurrence: None)
  Receive Date: 20120420
  Receipt Date: 20120411
  Transmission Date: 20120825
  Serious: Yes (Death)
  Sender: FDA-Public Use
  Company Number: DE-ROCHE-1059034

PATIENT
  Sex: Female

DRUGS (18)
  1. MIRCERA [Suspect]
     Indication: DIABETIC NEPHROPATHY
     Route: 058
     Dates: start: 20100324
  2. MIRCERA [Suspect]
     Route: 058
     Dates: start: 20100606
  3. MIRCERA [Suspect]
     Route: 058
     Dates: start: 20100805
  4. RENAGEL [Concomitant]
     Dates: start: 20100210
  5. ENOXAPARIN SODIUM [Concomitant]
     Dates: start: 20100524
  6. BISOPROLOL FUMARATE [Concomitant]
     Dates: start: 20091221
  7. DELIX PLUS [Concomitant]
     Dates: start: 20091221
  8. CREON [Concomitant]
     Dates: start: 20091221
  9. BICANORM [Concomitant]
     Dates: start: 20091221
  10. LANTUS [Concomitant]
     Dosage: 100 IU/ML
     Dates: start: 20091221
  11. CANDESARTAN CILEXETIL [Concomitant]
     Dates: start: 20091221
  12. CLONIDINE [Concomitant]
     Dates: start: 20091221
  13. MIRCERA [Suspect]
     Route: 058
     Dates: start: 20090905, end: 20091005
  14. MIRCERA [Suspect]
     Route: 058
     Dates: start: 20101104, end: 20110104
  15. TORSEMIDE [Concomitant]
     Dates: start: 20091221
  16. XIPAMID [Concomitant]
     Dates: start: 20091221
  17. MIRCERA [Suspect]
     Route: 058
     Dates: start: 20110126
  18. BONDIOL [Concomitant]
     Dates: start: 20091221

REACTIONS (1)
  - DEATH [None]
